FAERS Safety Report 7392213-4 (Version None)
Quarter: 2011Q2

REPORT INFORMATION
  Report Type: 
  Country: None (occurrence: None)
  Receive Date: 20110404
  Receipt Date: 20110328
  Transmission Date: 20111010
  Serious: Yes (Life-Threatening)
  Sender: FDA-Public Use
  Company Number: B0710548A

PATIENT
  Sex: Female
  Weight: 15 kg

DRUGS (1)
  1. ZINACEF [Suspect]
     Dosage: 650MG PER DAY
     Route: 065
     Dates: start: 20110314, end: 20110314

REACTIONS (5)
  - ASTHENIA [None]
  - SOMNOLENCE [None]
  - PRURITUS [None]
  - ANAPHYLACTIC REACTION [None]
  - URTICARIA [None]
